FAERS Safety Report 4262965-0 (Version None)
Quarter: 2004Q1

REPORT INFORMATION
  Report Type: 
  Country: None (occurrence: None)
  Receive Date: 20040105
  Receipt Date: 20031211
  Transmission Date: 20041129
  Serious: Yes (Hospitalization)
  Sender: FDA-Public Use
  Company Number: FR-BRISTOL-MYERS SQUIBB COMPANY-12455861

PATIENT
  Age: 74 Year
  Sex: Female

DRUGS (10)
  1. COUMADIN [Suspect]
     Dosage: 5 MG TABLETS.
     Route: 048
     Dates: end: 20031019
  2. NOROXIN [Suspect]
     Route: 048
     Dates: start: 20031013, end: 20031017
  3. RENITEC [Suspect]
     Dosage: DOSE  20 (UNIT UNSPECIFIED) PER DAY.
  4. HEMIGOXINE NATIVELLE [Concomitant]
  5. BEDELIX [Concomitant]
     Dates: start: 20031013, end: 20031017
  6. DAONIL [Concomitant]
  7. ALDACTONE [Concomitant]
  8. GLUCOR 100 [Concomitant]
  9. LASILIX [Concomitant]
  10. ARESTAL [Concomitant]

REACTIONS (14)
  - ABDOMINAL PAIN [None]
  - ACTIVATED PARTIAL THROMBOPLASTIN TIME [None]
  - BLOOD PRESSURE DECREASED [None]
  - COUGH [None]
  - CYTOLYTIC HEPATITIS [None]
  - DRUG INTERACTION [None]
  - HAEMATURIA [None]
  - HYPOPROTHROMBINAEMIA [None]
  - HYPOTENSION [None]
  - LOOSE STOOLS [None]
  - PROTEINURIA [None]
  - PRURITUS [None]
  - RENAL FAILURE [None]
  - WEIGHT INCREASED [None]
